FAERS Safety Report 8146273-3 (Version None)
Quarter: 2012Q1

REPORT INFORMATION
  Report Type: 
  Country: None (occurrence: None)
  Receive Date: 20120217
  Receipt Date: 20120209
  Transmission Date: 20120608
  Serious: Yes (Other)
  Sender: FDA-Public Use
  Company Number: PHHY2012JP008627

PATIENT
  Age: 80 Year
  Sex: Female

DRUGS (2)
  1. WARFARIN SODIUM [Concomitant]
     Dosage: 2 MG, QD
     Route: 048
  2. CEFTRIAXONE SODIUM [Suspect]
     Indication: PNEUMONIA
     Dosage: 2 G, QD
     Route: 042

REACTIONS (1)
  - INTERNATIONAL NORMALISED RATIO INCREASED [None]
